FAERS Safety Report 9917737 (Version 1)
Quarter: 2014Q1

REPORT INFORMATION
  Report Type: Spontaneous
  Country: US (occurrence: US)
  Receive Date: 20140221
  Receipt Date: 20140221
  Transmission Date: 20141002
  Serious: Yes (Other)
  Sender: FDA-Public Use
  Company Number: PHHY2014US018494

PATIENT
  Age: 21 Year
  Sex: Female

DRUGS (7)
  1. METFORMIN [Suspect]
  2. FENOFIBRATE [Suspect]
  3. OMEPRAZOLE [Suspect]
  4. GEMFIBROZIL [Suspect]
  5. NIACIN [Suspect]
  6. OMEGA-3 FATTY ACIDS [Suspect]
  7. INSULIN [Suspect]

REACTIONS (6)
  - Pancreatitis acute [Unknown]
  - Blood triglycerides increased [Unknown]
  - Hyperglycaemia [Unknown]
  - Pre-eclampsia [Unknown]
  - Premature labour [Unknown]
  - Maternal exposure during pregnancy [Unknown]
